FAERS Safety Report 7170732-3 (Version None)
Quarter: 2010Q4

REPORT INFORMATION
  Report Type: 
  Country: None (occurrence: None)
  Receive Date: 20101214
  Receipt Date: 20101214
  Transmission Date: 20110411
  Serious: Yes (Life-Threatening)
  Sender: FDA-Public Use
  Company Number: None

PATIENT
  Age: 74 Year
  Sex: Female
  Weight: 104 kg

DRUGS (1)
  1. VANCOMYCIN [Suspect]
     Indication: KNEE ARTHROPLASTY
     Dosage: 1GRAM IV PIGGYBACK OVER
     Route: 042
     Dates: start: 20101108

REACTIONS (3)
  - INFUSION RELATED REACTION [None]
  - MYOCARDIAL INFARCTION [None]
  - UNRESPONSIVE TO STIMULI [None]
